FAERS Safety Report 7907191-6 (Version None)
Quarter: 2011Q4

REPORT INFORMATION
  Report Type: 
  Country: None (occurrence: None)
  Receive Date: 20111110
  Receipt Date: 20110726
  Transmission Date: 20120403
  Serious: No
  Sender: FDA-Public Use
  Company Number: US-BAYER-2011-068238

PATIENT
  Sex: Female

DRUGS (2)
  1. THERAFLU [Suspect]
  2. ALEVE (CAPLET) [Suspect]
     Route: 048

REACTIONS (3)
  - HEADACHE [None]
  - INSOMNIA [None]
  - MUSCULOSKELETAL STIFFNESS [None]
